FAERS Safety Report 6179153-3 (Version None)
Quarter: 2009Q2

REPORT INFORMATION
  Report Type: 
  Country: None (occurrence: None)
  Receive Date: 20090505
  Receipt Date: 20090424
  Transmission Date: 20091009
  Serious: Yes (Hospitalization)
  Sender: FDA-Public Use
  Company Number: PHHO2009KR04838

PATIENT
  Sex: Male
  Weight: 78.1 kg

DRUGS (3)
  1. CERTICAN [Suspect]
     Indication: RENAL TRANSPLANT
     Dosage: 0.5 MG, BID
     Route: 048
     Dates: start: 20090311
  2. NEORAL [Suspect]
     Indication: RENAL TRANSPLANT
     Dosage: UNK
     Route: 048
     Dates: start: 20090311, end: 20090331
  3. NEORAL [Suspect]
     Dosage: UNK
     Route: 048
     Dates: start: 20090331

REACTIONS (5)
  - BLOOD CREATININE INCREASED [None]
  - INFLAMMATION [None]
  - KIDNEY FIBROSIS [None]
  - NEPHROPATHY TOXIC [None]
  - TUBULOINTERSTITIAL NEPHRITIS [None]
